FAERS Safety Report 7652705-7 (Version None)
Quarter: 2011Q3

REPORT INFORMATION
  Report Type: 
  Country: None (occurrence: None)
  Receive Date: 20110803
  Receipt Date: 20110729
  Transmission Date: 20111222
  Serious: Yes (Hospitalization)
  Sender: FDA-Public Use
  Company Number: GB-TEVA-294353ISR

PATIENT
  Age: 67 Year
  Sex: Female

DRUGS (2)
  1. ERYTHROMYCIN [Interacting]
     Indication: TOOTH INFECTION
     Route: 048
     Dates: start: 20100529, end: 20100531
  2. AMITRIPTYLINE HCL [Suspect]
     Indication: BACK PAIN
     Route: 048

REACTIONS (2)
  - SYNCOPE [None]
  - DRUG INTERACTION [None]
